FAERS Safety Report 9555351 (Version 1)
Quarter: 2013Q3

REPORT INFORMATION
  Report Type: Spontaneous
  Country: US (occurrence: None)
  Receive Date: 20130816
  Receipt Date: 20130816
  Transmission Date: 20140515
  Serious: Yes (Other)
  Sender: FDA-Public Use
  Company Number: US-011860

PATIENT
  Age: 72 Year
  Sex: Female
  Weight: 95.71 kg

DRUGS (1)
  1. PICO-SALAX [Suspect]
     Indication: BOWEL PREPARATION
     Route: 048
     Dates: start: 20130521, end: 20130522

REACTIONS (2)
  - Product quality issue [None]
  - Drug ineffective [None]
